FAERS Safety Report 4852352-6 (Version None)
Quarter: 2005Q4

REPORT INFORMATION
  Report Type: 
  Country: None (occurrence: None)
  Receive Date: 20051209
  Receipt Date: 20051201
  Transmission Date: 20060501
  Serious: Yes (Hospitalization)
  Sender: FDA-Public Use
  Company Number: US-2005-025368

PATIENT
  Age: 40 Year
  Sex: Female
  Weight: 60 kg

DRUGS (5)
  1. CLIMARA [Suspect]
     Indication: HORMONE REPLACEMENT THERAPY
     Dosage: SEE IMAGE
     Route: 062
     Dates: start: 20050501, end: 20050501
  2. CLIMARA [Suspect]
     Indication: HORMONE REPLACEMENT THERAPY
     Dosage: SEE IMAGE
     Route: 062
     Dates: start: 20050501
  3. NEXIUM [Concomitant]
  4. ZYRTEC [Concomitant]
  5. FERROUS SULPHATE (FERROUS SULPHATE) [Concomitant]

REACTIONS (3)
  - HYPERTENSION [None]
  - MIGRAINE [None]
  - PERICARDIAL EFFUSION [None]
